FAERS Safety Report 6153096-3 (Version None)
Quarter: 2009Q2

REPORT INFORMATION
  Report Type: 
  Country: None (occurrence: None)
  Receive Date: 20090409
  Receipt Date: 20090403
  Transmission Date: 20091009
  Serious: Yes (Hospitalization)
  Sender: FDA-Public Use
  Company Number: WAES 0904US00562

PATIENT
  Age: 62 Year
  Sex: Male

DRUGS (13)
  1. DECADRON [Suspect]
     Indication: AMYLOIDOSIS
     Dosage: PO
     Route: 048
     Dates: start: 20080611
  2. REVLIMID [Suspect]
     Indication: AMYLOIDOSIS
     Dosage: PO
     Route: 048
     Dates: start: 20080611
  3. CYTOXAN [Suspect]
     Indication: AMYLOIDOSIS
     Dosage: PO
     Route: 048
     Dates: start: 20080611
  4. CENTRUM SILVER [Concomitant]
  5. COMBIVENT [Concomitant]
  6. LASIX [Concomitant]
  7. PULMICORT-100 [Concomitant]
  8. SYNTHROID [Concomitant]
  9. ASPIRIN [Concomitant]
  10. FLUTICASONE [Concomitant]
  11. OMEGA-3 MARINE TRIGLYCERIDES [Concomitant]
  12. PENICILLIN V POTASSIUM [Concomitant]
  13. SULFAMETHOXAZOLE AND TRIMETHOPRIM [Concomitant]

REACTIONS (1)
  - PNEUMONIA [None]
